FAERS Safety Report 20749911 (Version 1)
Quarter: 2022Q2

REPORT INFORMATION
  Report Type: Spontaneous
  Country: US (occurrence: None)
  Receive Date: 20220425
  Receipt Date: 20220425
  Transmission Date: 20220721
  Serious: No
  Sender: FDA-Public Use
  Company Number: None

PATIENT
  Age: 40 Year
  Sex: Female

DRUGS (1)
  1. OTEZLA [Suspect]
     Active Substance: APREMILAST
     Dates: start: 20220318, end: 20220324

REACTIONS (5)
  - Restlessness [None]
  - Insomnia [None]
  - Heart rate increased [None]
  - Decreased appetite [None]
  - Tachycardia [None]

NARRATIVE: CASE EVENT DATE: 20220322
